FAERS Safety Report 7325087-8 (Version None)
Quarter: 2011Q1

REPORT INFORMATION
  Report Type: 
  Country: None (occurrence: None)
  Receive Date: 20110302
  Receipt Date: 20110221
  Transmission Date: 20110831
  Serious: Yes (Hospitalization, Other)
  Sender: FDA-Public Use
  Company Number: US-BIOGENIDEC-2005BI016586

PATIENT
  Sex: Male

DRUGS (2)
  1. AVONEX [Suspect]
     Route: 030
     Dates: start: 20051107, end: 20100101
  2. AVONEX [Suspect]
     Indication: MULTIPLE SCLEROSIS
     Route: 030
     Dates: start: 20050316, end: 20051024

REACTIONS (3)
  - BRAIN TUMOUR OPERATION [None]
  - CENTRAL NERVOUS SYSTEM DERMOID TUMOUR [None]
  - CONVULSION [None]
